FAERS Safety Report 14252606 (Version 1)
Quarter: 2017Q4

REPORT INFORMATION
  Report Type: Spontaneous
  Country: FR (occurrence: FR)
  Receive Date: 20171205
  Receipt Date: 20171205
  Transmission Date: 20180321
  Serious: Yes (Other)
  Sender: FDA-Public Use
  Company Number: FR-MERCK KGAA-2036753

PATIENT
  Age: 74 Year
  Sex: Female

DRUGS (1)
  1. NOVOTHYROX [Suspect]
     Active Substance: LEVOTHYROXINE SODIUM
     Indication: HYPOTHYROIDISM
     Route: 048
     Dates: end: 20171010

REACTIONS (7)
  - Amnesia [Recovered/Resolved]
  - Diarrhoea [Recovered/Resolved]
  - Diffuse alopecia [Recovered/Resolved]
  - Musculoskeletal pain [Recovered/Resolved]
  - Suicidal ideation [Recovered/Resolved]
  - Visual acuity reduced [Recovered/Resolved]
  - Nausea [Recovered/Resolved]

NARRATIVE: CASE EVENT DATE: 201703
